FAERS Safety Report 13070389 (Version 1)
Quarter: 2016Q4

REPORT INFORMATION
  Report Type: Report from Study
  Country: CN (occurrence: CN)
  Receive Date: 20161228
  Receipt Date: 20161228
  Transmission Date: 20170207
  Serious: Yes (Death, Other)
  Sender: FDA-Public Use
  Company Number: CN-ROCHE-1871670

PATIENT

DRUGS (6)
  1. 5-FLUOROURACIL [Suspect]
     Active Substance: FLUOROURACIL
     Indication: NASOPHARYNGEAL CANCER
     Route: 065
  2. TEGAFUR/URACIL [Suspect]
     Active Substance: TEGAFUR\URACIL
     Indication: NASOPHARYNGEAL CANCER
     Route: 048
  3. PACLITAXEL. [Suspect]
     Active Substance: PACLITAXEL
     Indication: NASOPHARYNGEAL CANCER
     Route: 065
  4. CAPECITABINE. [Suspect]
     Active Substance: CAPECITABINE
     Indication: NASOPHARYNGEAL CANCER
     Route: 048
  5. GEMCITABINE [Suspect]
     Active Substance: GEMCITABINE\GEMCITABINE HYDROCHLORIDE
     Indication: NASOPHARYNGEAL CANCER
     Route: 065
  6. CISPLATIN. [Suspect]
     Active Substance: CISPLATIN
     Indication: NASOPHARYNGEAL CANCER
     Route: 065

REACTIONS (5)
  - Neutropenia [Unknown]
  - Anaemia [Unknown]
  - Death [Fatal]
  - Thrombocytopenia [Unknown]
  - Neutropenic sepsis [Fatal]
